FAERS Safety Report 21377012 (Version 1)
Quarter: 2022Q3

REPORT INFORMATION
  Report Type: Spontaneous
  Country: US (occurrence: None)
  Receive Date: 20220925
  Receipt Date: 20220925
  Transmission Date: 20221027
  Serious: Yes (unspecified)
  Sender: FDA-Public Use
  Company Number: None

PATIENT
  Age: 37 Year
  Sex: Male
  Weight: 92.99 kg

DRUGS (2)
  1. DEXTROAMPHETAMINE [Suspect]
     Active Substance: DEXTROAMPHETAMINE
  2. COSMETICS [Suspect]
     Active Substance: COSMETICS

REACTIONS (7)
  - Palpitations [None]
  - Hyperhidrosis [None]
  - Palpitations [None]
  - Headache [None]
  - Product substitution issue [None]
  - Therapeutic response decreased [None]
  - Adverse drug reaction [None]

NARRATIVE: CASE EVENT DATE: 20220922
